FAERS Safety Report 6271859-0 (Version None)
Quarter: 2009Q3

REPORT INFORMATION
  Report Type: 
  Country: None (occurrence: None)
  Receive Date: 20090717
  Receipt Date: 20090707
  Transmission Date: 20100115
  Serious: Yes (Other)
  Sender: FDA-Public Use
  Company Number: PHEH2009US06780

PATIENT
  Sex: Female

DRUGS (1)
  1. DIOVAN [Suspect]
     Dosage: UNK, UNK
     Route: 048

REACTIONS (4)
  - ASTHENIA [None]
  - DECREASED APPETITE [None]
  - LEUKAEMIA [None]
  - NAUSEA [None]
